FAERS Safety Report 23050256 (Version 2)
Quarter: 2023Q4

REPORT INFORMATION
  Report Type: Spontaneous
  Country: US (occurrence: None)
  Receive Date: 20231010
  Receipt Date: 20231124
  Transmission Date: 20240110
  Serious: Yes (Life-Threatening, Other)
  Sender: FDA-Public Use
  Company Number: 2023A227377

PATIENT

DRUGS (1)
  1. TEZSPIRE [Suspect]
     Active Substance: TEZEPELUMAB-EKKO

REACTIONS (7)
  - Vasculitic rash [Unknown]
  - Anaphylactic reaction [Unknown]
  - Wheezing [Unknown]
  - Conjunctival hyperaemia [Unknown]
  - Erythema [Unknown]
  - Face oedema [Unknown]
  - Rash [Unknown]
